FAERS Safety Report 6075971-0 (Version None)
Quarter: 2009Q1

REPORT INFORMATION
  Report Type: 
  Country: None (occurrence: None)
  Receive Date: 20090212
  Receipt Date: 20090204
  Transmission Date: 20090719
  Serious: Yes (Hospitalization, Disabling)
  Sender: FDA-Public Use
  Company Number: GB-PFIZER INC-2009165827

PATIENT

DRUGS (5)
  1. LYRICA [Suspect]
     Indication: PAIN
     Dosage: UNK
  2. IBUPROFEN [Suspect]
     Indication: PAIN
     Dosage: UNK
  3. PARACETAMOL [Suspect]
     Indication: PAIN
     Dosage: UNK
  4. TRAMADOL [Suspect]
     Indication: PAIN
     Dosage: UNK
  5. MORPHINE [Concomitant]
     Indication: PAIN
     Dosage: UNK

REACTIONS (10)
  - ABDOMINAL PAIN [None]
  - BILIARY NEOPLASM [None]
  - DISTURBANCE IN ATTENTION [None]
  - FALL [None]
  - INSOMNIA [None]
  - MALAISE [None]
  - MUSCLE SPASMS [None]
  - PAIN [None]
  - SUICIDAL IDEATION [None]
  - TREMOR [None]
